FAERS Safety Report 9969851 (Version 2)
Quarter: 2014Q1

REPORT INFORMATION
  Report Type: Spontaneous
  Country: GB (occurrence: GB)
  Receive Date: 20140306
  Receipt Date: 20140306
  Transmission Date: 20141002
  Serious: Yes (Disabling, Other)
  Sender: FDA-Public Use
  Company Number: GB-SA-2014SA008353

PATIENT
  Age: 52 Year
  Sex: Male
  Weight: 87.4 kg

DRUGS (4)
  1. LANTUS SOLOSTAR [Suspect]
     Indication: TYPE 2 DIABETES MELLITUS
     Dosage: DOSE:34 UNIT(S)
     Route: 058
     Dates: start: 20100427
  2. VICTOZA [Suspect]
     Indication: PRODUCT USED FOR UNKNOWN INDICATION
     Route: 065
     Dates: end: 20140211
  3. ATORVASTATIN [Concomitant]
  4. GLUCOPHAGE [Concomitant]
     Dates: end: 20140211

REACTIONS (4)
  - Cold sweat [Recovered/Resolved]
  - Muscle spasms [Recovered/Resolved]
  - Disturbance in attention [Recovered/Resolved]
  - Diabetes mellitus inadequate control [Not Recovered/Not Resolved]
